FAERS Safety Report 9692510 (Version 2)
Quarter: 2014Q1

REPORT INFORMATION
  Report Type: Spontaneous
  Country: US (occurrence: US)
  Receive Date: 20131118
  Receipt Date: 20140130
  Transmission Date: 20141002
  Serious: No
  Sender: FDA-Public Use
  Company Number: US-PFIZER INC-2013328404

PATIENT
  Age: 61 Year
  Sex: Female
  Weight: 65.8 kg

DRUGS (3)
  1. PRISTIQ [Suspect]
     Indication: DEPRESSION
     Dosage: 50 MG, DAILY
     Route: 048
     Dates: start: 201309, end: 2013
  2. PRISTIQ [Suspect]
     Dosage: 100 MG (TWO TABLETS 50 MG TOGETHER), DAILY
     Route: 048
     Dates: start: 2013, end: 2013
  3. PRISTIQ [Suspect]
     Dosage: UNK
     Route: 048
     Dates: start: 2013, end: 20131108

REACTIONS (8)
  - Drug ineffective [Unknown]
  - Nausea [Unknown]
  - Vomiting [Unknown]
  - Headache [Recovering/Resolving]
  - Diarrhoea [Unknown]
  - Paraesthesia [Not Recovered/Not Resolved]
  - Abnormal behaviour [Not Recovered/Not Resolved]
  - Hypoaesthesia [Unknown]
